FAERS Safety Report 9254293 (Version 1)
Quarter: 2013Q2

REPORT INFORMATION
  Report Type: Spontaneous
  Country: US (occurrence: None)
  Receive Date: 20130422
  Receipt Date: 20130422
  Transmission Date: 20140414
  Serious: Yes (Other)
  Sender: FDA-Public Use
  Company Number: 20103P1004665

PATIENT
  Age: 14 Year
  Sex: Male

DRUGS (1)
  1. MYORISAN 40 MG [Suspect]

REACTIONS (1)
  - Depression [None]
